FAERS Safety Report 5415996-9 (Version None)
Quarter: 2007Q3

REPORT INFORMATION
  Report Type: 
  Country: None (occurrence: None)
  Receive Date: 20070815
  Receipt Date: 20070803
  Transmission Date: 20080115
  Serious: Yes (Other)
  Sender: FDA-Public Use
  Company Number: US-PFIZER INC-2007066219

PATIENT
  Sex: Female
  Weight: 83 kg

DRUGS (4)
  1. CHANTIX [Suspect]
     Indication: SMOKING CESSATION THERAPY
  2. PERCODAN [Suspect]
     Indication: PAIN
  3. CELEBREX [Concomitant]
  4. TYLENOL W/ CODEINE [Concomitant]

REACTIONS (9)
  - ADENOIDAL DISORDER [None]
  - BURNING SENSATION [None]
  - DYSPHAGIA [None]
  - DYSPNOEA [None]
  - INSOMNIA [None]
  - PAIN [None]
  - PANIC ATTACK [None]
  - RASH [None]
  - SWELLING [None]
